FAERS Safety Report 4421673-3 (Version None)
Quarter: 2004Q3

REPORT INFORMATION
  Report Type: 
  Country: None (occurrence: None)
  Receive Date: 20040805
  Receipt Date: 20040802
  Transmission Date: 20050211
  Serious: Yes (Other)
  Sender: FDA-Public Use
  Company Number: 8566

PATIENT
  Sex: Female

DRUGS (1)
  1. METHOTREXATE [Suspect]
     Indication: SLE ARTHRITIS
     Dosage: 25 MG WEEKLY INJ

REACTIONS (4)
  - CHILLS [None]
  - CYANOSIS [None]
  - FEELING ABNORMAL [None]
  - PYREXIA [None]
